FAERS Safety Report 10156179 (Version 2)
Quarter: 2014Q2

REPORT INFORMATION
  Report Type: Spontaneous
  Country: US (occurrence: US)
  Receive Date: 20140506
  Receipt Date: 20140506
  Transmission Date: 20141212
  Serious: Yes (Hospitalization, Disabling, Other)
  Sender: FDA-Public Use
  Company Number: US-009507513-1107USA02913

PATIENT
  Sex: Female
  Weight: 51.26 kg

DRUGS (5)
  1. FOSAMAX [Suspect]
     Indication: OSTEOPOROSIS
     Dosage: 10 MG, QD
     Route: 048
     Dates: start: 19980701, end: 2002
  2. FOSAMAX [Suspect]
     Indication: OSTEOPENIA
     Dosage: 70 MG, QW
     Route: 048
     Dates: start: 2002, end: 2011
  3. PREMARIN [Concomitant]
     Indication: OSTEOPOROSIS
     Dosage: 0.3 MG, QD
     Route: 048
     Dates: start: 19980701
  4. FOSAMAX [Suspect]
     Indication: OSTEOPOROSIS
     Dosage: 70 MG, QW
     Route: 048
     Dates: start: 20080614, end: 20110617
  5. FOSAMAX [Suspect]
     Indication: OSTEOPENIA

REACTIONS (54)
  - Femur fracture [Unknown]
  - Anxiety [Unknown]
  - Dyspnoea [Unknown]
  - Myocardial infarction [Unknown]
  - Bronchitis [Unknown]
  - Chronic obstructive pulmonary disease [Unknown]
  - Hyponatraemia [Recovered/Resolved]
  - Intracranial aneurysm [Unknown]
  - Coronary artery disease [Unknown]
  - Presyncope [Unknown]
  - Hypertension [Unknown]
  - Fall [Unknown]
  - Anaemia [Unknown]
  - Deafness bilateral [Unknown]
  - Hip fracture [Unknown]
  - Atrial fibrillation [Unknown]
  - Contusion [Unknown]
  - Aortic arteriosclerosis [Unknown]
  - Left ventricular hypertrophy [Unknown]
  - Basal cell carcinoma [Unknown]
  - Hypokalaemia [Recovered/Resolved]
  - Hyperglycaemia [Unknown]
  - Gastrointestinal disorder [Unknown]
  - Fall [Unknown]
  - Pubis fracture [Unknown]
  - Dehydration [Recovered/Resolved]
  - Dizziness [Unknown]
  - Ear pain [Unknown]
  - Musculoskeletal discomfort [Unknown]
  - Drug hypersensitivity [Unknown]
  - Anxiety [Unknown]
  - Depression [Unknown]
  - Respiratory tract infection [Unknown]
  - Dyspnoea [Unknown]
  - Hypokalaemia [Unknown]
  - Eye disorder [Unknown]
  - Malaise [Unknown]
  - Diarrhoea [Unknown]
  - Lumbar radiculopathy [Unknown]
  - Cerumen impaction [Unknown]
  - Treatment noncompliance [Unknown]
  - Vitamin D deficiency [Unknown]
  - Hypothyroidism [Unknown]
  - Cataract [Unknown]
  - Osteoarthritis [Unknown]
  - Diarrhoea [Unknown]
  - Macular hole [Unknown]
  - Vitreous detachment [Unknown]
  - Intraocular lens implant [Unknown]
  - Optic nerve cupping [Unknown]
  - Vascular calcification [Unknown]
  - Arthralgia [Unknown]
  - Hypersensitivity [Unknown]
  - Hypersensitivity [Unknown]
